FAERS Safety Report 7225431-6 (Version None)
Quarter: 2011Q1

REPORT INFORMATION
  Report Type: 
  Country: None (occurrence: None)
  Receive Date: 20110113
  Receipt Date: 20110110
  Transmission Date: 20110831
  Serious: Yes (Hospitalization)
  Sender: FDA-Public Use
  Company Number: DE-ROCHE-752451

PATIENT
  Sex: Female
  Weight: 63 kg

DRUGS (1)
  1. TOCILIZUMAB [Suspect]
     Indication: RHEUMATOID ARTHRITIS
     Dosage: LAST ADMINISTRATION PRIOR TO THE EVENTS ON 23 MAR 2010
     Route: 042
     Dates: start: 20100127

REACTIONS (1)
  - ATRIAL FIBRILLATION [None]
